FAERS Safety Report 15279649 (Version 1)
Quarter: 2018Q3

REPORT INFORMATION
  Report Type: Spontaneous
  Country: US (occurrence: US)
  Receive Date: 20180815
  Receipt Date: 20180815
  Transmission Date: 20181010
  Serious: No
  Sender: FDA-Public Use
  Company Number: US-PFIZER INC-2018327724

PATIENT
  Sex: Male
  Weight: 122.4 kg

DRUGS (1)
  1. ZOLOFT [Suspect]
     Active Substance: SERTRALINE HYDROCHLORIDE
     Indication: DEPRESSION
     Dosage: 150 MG, DAILY (1.5 TABLETS OF THE 100MG)
     Route: 048

REACTIONS (1)
  - Drug ineffective [Unknown]
